FAERS Safety Report 14803170 (Version 1)
Quarter: 2018Q2

REPORT INFORMATION
  Report Type: Spontaneous
  Country: AR (occurrence: AR)
  Receive Date: 20180425
  Receipt Date: 20180425
  Transmission Date: 20180711
  Serious: Yes (Other)
  Sender: FDA-Public Use
  Company Number: AR-AMGEN-ARGSP2018055464

PATIENT
  Age: 76 Year
  Sex: Female

DRUGS (1)
  1. ENBREL [Suspect]
     Active Substance: ETANERCEPT
     Indication: RHEUMATOID ARTHRITIS
     Dosage: 50 MG, QWK
     Route: 065
     Dates: start: 20120202

REACTIONS (7)
  - Condition aggravated [Unknown]
  - Pain [Unknown]
  - Nodule [Unknown]
  - Fibromyalgia [Unknown]
  - Arthritis [Unknown]
  - Gait inability [Unknown]
  - Malaise [Unknown]

NARRATIVE: CASE EVENT DATE: 2017
